FAERS Safety Report 10072542 (Version 4)
Quarter: 2014Q4

REPORT INFORMATION
  Report Type: Spontaneous
  Country: JP (occurrence: JP)
  Receive Date: 20140411
  Receipt Date: 20141022
  Transmission Date: 20150528
  Serious: Yes (Death, Hospitalization)
  Sender: FDA-Public Use
  Company Number: JP-BAYER-2014-051823

PATIENT
  Age: 67 Year
  Sex: Male
  Weight: 59 kg

DRUGS (12)
  1. FAMOTIDINE. [Concomitant]
     Active Substance: FAMOTIDINE
     Dosage: UNK
  2. NOVORAPID [Concomitant]
     Active Substance: INSULIN ASPART
     Dosage: UNK
  3. OXYFAST [Concomitant]
     Active Substance: OXYCODONE
     Dosage: UNK
  4. LOXOPROFEN [Concomitant]
     Active Substance: LOXOPROFEN
     Dosage: UNK
     Route: 048
  5. GOREI-SAN [Concomitant]
     Active Substance: HERBALS
     Dosage: UNK
     Route: 048
  6. STIVARGA [Suspect]
     Active Substance: REGORAFENIB
     Indication: COLON CANCER
     Dosage: 160 MG, QD
     Route: 048
     Dates: start: 20140221, end: 20140223
  7. LANTUS [Concomitant]
     Active Substance: INSULIN GLARGINE
     Dosage: UNK
  8. PYDOXAL [Concomitant]
     Active Substance: PYRIDOXAL
     Dosage: UNK
  9. BIO-THREE [Concomitant]
     Active Substance: HERBALS
     Dosage: UNK
     Route: 048
  10. GOSHAJINKIGAN [Concomitant]
     Active Substance: HERBALS
     Dosage: UNK
     Route: 048
  11. DAIKENTYUTO [Concomitant]
     Active Substance: HERBALS
     Dosage: UNK
     Route: 048
  12. MARZULENE [Concomitant]
     Active Substance: SODIUM GUALENATE
     Dosage: UNK
     Route: 048

REACTIONS (1)
  - Interstitial lung disease [Fatal]

NARRATIVE: CASE EVENT DATE: 20140223
